FAERS Safety Report 5086461-6 (Version None)
Quarter: 2006Q3

REPORT INFORMATION
  Report Type: 
  Country: None (occurrence: None)
  Receive Date: 20060823
  Receipt Date: 20060811
  Transmission Date: 20061208
  Serious: Yes (Other)
  Sender: FDA-Public Use
  Company Number: US-BRISTOL-MYERS SQUIBB COMPANY-13473095

PATIENT
  Age: 3 Year
  Sex: Female
  Weight: 13 kg

DRUGS (1)
  1. TRIMOX [Suspect]
     Indication: PHARYNGITIS STREPTOCOCCAL
     Dosage: DOSAGE FORM-TSP
     Route: 048
     Dates: start: 20060806

REACTIONS (1)
  - CONVULSION [None]
